FAERS Safety Report 6259474-6 (Version None)
Quarter: 2009Q3

REPORT INFORMATION
  Report Type: 
  Country: None (occurrence: None)
  Receive Date: 20090708
  Receipt Date: 20090626
  Transmission Date: 20100115
  Serious: Yes (Hospitalization)
  Sender: FDA-Public Use
  Company Number: BR-BIOGENIDEC-2009BI012123

PATIENT
  Age: 55 Year
  Sex: Female

DRUGS (3)
  1. AVONEX [Suspect]
     Indication: MULTIPLE SCLEROSIS
     Route: 030
     Dates: start: 20070401
  2. BACLOFEN [Concomitant]
     Indication: PAIN IN EXTREMITY
  3. UNSPECIFIED MEDICINE [Concomitant]
     Indication: DIABETES MELLITUS

REACTIONS (7)
  - BLINDNESS UNILATERAL [None]
  - INFLUENZA LIKE ILLNESS [None]
  - INJECTION SITE INDURATION [None]
  - MALAISE [None]
  - MULTIPLE SCLEROSIS RELAPSE [None]
  - SPINAL HAEMANGIOMA [None]
  - URINARY INCONTINENCE [None]
